FAERS Safety Report 10048496 (Version 1)
Quarter: 2014Q1

REPORT INFORMATION
  Report Type: Spontaneous
  Country: US (occurrence: US)
  Receive Date: 20140331
  Receipt Date: 20140331
  Transmission Date: 20141002
  Serious: Yes (Other)
  Sender: FDA-Public Use
  Company Number: US-BRISTOL-MYERS SQUIBB COMPANY-20569729

PATIENT
  Age: 64 Year
  Sex: Female
  Weight: 170 kg

DRUGS (1)
  1. COUMADIN [Suspect]
     Indication: THROMBOSIS

REACTIONS (2)
  - Renal cancer [Unknown]
  - International normalised ratio fluctuation [Unknown]
